FAERS Safety Report 8334324-2 (Version None)
Quarter: 2012Q2

REPORT INFORMATION
  Report Type: 
  Country: None (occurrence: None)
  Receive Date: 20120503
  Receipt Date: 20120430
  Transmission Date: 20120825
  Serious: Yes (Other)
  Sender: FDA-Public Use
  Company Number: US-PFIZER INC-2012106071

PATIENT
  Sex: Male
  Weight: 95.238 kg

DRUGS (6)
  1. LYRICA [Suspect]
     Indication: INTERVERTEBRAL DISC PROTRUSION
     Dosage: 150 MG, UNK
     Route: 048
  2. AMITRIPTYLINE [Concomitant]
     Indication: PAIN
  3. LYRICA [Suspect]
     Indication: NERVE INJURY
     Dosage: 200 MG, UNK
     Route: 048
     Dates: end: 20120423
  4. AMITRIPTYLINE [Concomitant]
     Indication: INSOMNIA
     Dosage: 100 MG,DAILY
     Dates: start: 20090307
  5. XANAX [Concomitant]
     Indication: ANXIETY
     Dosage: 3 MG,DAILY
  6. LYRICA [Suspect]
     Indication: INFLAMMATION
     Dosage: 75 MG, DAILY
     Route: 048
     Dates: start: 20120320

REACTIONS (5)
  - THROMBOSIS [None]
  - ARTHRALGIA [None]
  - MUSCLE SPASMS [None]
  - OEDEMA PERIPHERAL [None]
  - GAIT DISTURBANCE [None]
